FAERS Safety Report 20336297 (Version 2)
Quarter: 2022Q1

REPORT INFORMATION
  Report Type: Spontaneous
  Country: US (occurrence: US)
  Receive Date: 20220114
  Receipt Date: 20220118
  Transmission Date: 20220423
  Serious: No
  Sender: FDA-Public Use
  Company Number: US-PFIZER INC-2021591799

PATIENT
  Age: 35 Year
  Sex: Male

DRUGS (2)
  1. LORBRENA [Suspect]
     Active Substance: LORLATINIB
     Dosage: 100 MG, CYCLIC (100 MG DAILY D1-21Q 28 DAYS AS DIRECTED)
     Route: 048
  2. LORBRENA [Suspect]
     Active Substance: LORLATINIB
     Dosage: 100 MG

REACTIONS (4)
  - Neoplasm progression [Unknown]
  - Jaw disorder [Unknown]
  - Mutism [Unknown]
  - Off label use [Unknown]
